FAERS Safety Report 15952185 (Version 2)
Quarter: 2019Q1

REPORT INFORMATION
  Report Type: Spontaneous
  Country: US (occurrence: US)
  Receive Date: 20190212
  Receipt Date: 20190327
  Transmission Date: 20190417
  Serious: No
  Sender: FDA-Public Use
  Company Number: US-SA-2019SA036998

PATIENT
  Age: 67 Year
  Sex: Female

DRUGS (1)
  1. TOUJEO [Suspect]
     Active Substance: INSULIN GLARGINE
     Dosage: BETWEEN 22 UNITS AND 24 UNITS PER DAY
     Route: 065

REACTIONS (1)
  - Contusion [Unknown]
